FAERS Safety Report 10618603 (Version 1)
Quarter: 2014Q4

REPORT INFORMATION
  Report Type: Report from Study
  Country: US (occurrence: None)
  Receive Date: 20141125
  Receipt Date: 20141125
  Transmission Date: 20150529
  Serious: Yes (Other)
  Sender: FDA-Public Use
  Company Number: 2014SA144380

PATIENT
  Age: 66 Year
  Sex: Female

DRUGS (6)
  1. LANTUS [Suspect]
     Active Substance: INSULIN GLARGINE
     Indication: TYPE 2 DIABETES MELLITUS
     Dosage: 200 UNITS
  2. SOLOSTAR [Concomitant]
     Active Substance: DEVICE
  3. APIDRA SOLOSTAR [Suspect]
     Active Substance: INSULIN GLULISINE
     Indication: TYPE 2 DIABETES MELLITUS
     Dosage: 4 TIMES A DAY
  4. LANTUS [Suspect]
     Active Substance: INSULIN GLARGINE
     Indication: TYPE 2 DIABETES MELLITUS
     Dosage: 180 UNITS
  5. HUMULIN N [Concomitant]
     Active Substance: INSULIN HUMAN
  6. SOLOSTAR [Concomitant]
     Active Substance: DEVICE

REACTIONS (5)
  - Drug administration error [None]
  - Intentional underdose [None]
  - Neoplasm malignant [None]
  - Diabetes mellitus inadequate control [None]
  - Vision blurred [None]
